FAERS Safety Report 4674972-4 (Version None)
Quarter: 2005Q2

REPORT INFORMATION
  Report Type: 
  Country: None (occurrence: None)
  Receive Date: 20050526
  Receipt Date: 20050513
  Transmission Date: 20051028
  Serious: Yes (Other)
  Sender: FDA-Public Use
  Company Number: 2005075392

PATIENT
  Age: 53 Year
  Sex: Female
  Weight: 79.3795 kg

DRUGS (7)
  1. BEXTRA [Suspect]
     Indication: JOINT INJURY
     Dosage: 20 MG, (20 MG, 1 IN 1 D), ORAL
     Route: 048
     Dates: start: 20010101
  2. BEXTRA [Suspect]
     Indication: LIMB INJURY
     Dosage: 20 MG, (20 MG, 1 IN 1 D), ORAL
     Route: 048
     Dates: start: 20010101
  3. VIOXX [Suspect]
     Indication: JOINT INJURY
     Dosage: ORAL
     Route: 048
     Dates: start: 19990101, end: 20010101
  4. VIOXX [Suspect]
     Indication: LIMB INJURY
     Dosage: ORAL
     Route: 048
     Dates: start: 19990101, end: 20010101
  5. DARVOCET (DEXTROPROPOXYPHENE NAPSILATE, PARACETAMOL) [Concomitant]
  6. PREMPRO [Concomitant]
  7. VICODIN [Concomitant]

REACTIONS (7)
  - BLOOD IRON ABNORMAL [None]
  - CONTUSION [None]
  - OEDEMA PERIPHERAL [None]
  - PAIN IN EXTREMITY [None]
  - ROTATOR CUFF SYNDROME [None]
  - SKIN DISCOLOURATION [None]
  - WEIGHT INCREASED [None]
